FAERS Safety Report 8661798 (Version 6)
Quarter: 2013Q4

REPORT INFORMATION
  Report Type: Report from Study
  Country: JP (occurrence: JP)
  Receive Date: 20120712
  Receipt Date: 20131025
  Transmission Date: 20140711
  Serious: Yes (Hospitalization, Other)
  Sender: FDA-Public Use
  Company Number: JP-VERTEX PHARMACEUTICALS INC.-AE-2012-009875

PATIENT
  Age: 57 Year
  Sex: Female

DRUGS (19)
  1. VX-950 (TELAPREVIR) [Suspect]
     Indication: CHRONIC HEPATITIS C
     Dosage: 2250 MG, QD
     Route: 048
     Dates: start: 20120428, end: 20120616
  2. VX-950 (TELAPREVIR) [Suspect]
     Dosage: 1500 MG, QD
     Route: 048
     Dates: start: 20120617, end: 20120721
  3. PEGINTRON [Suspect]
     Indication: CHRONIC HEPATITIS C
     Dosage: 1.2 ?G/KG, QW
     Route: 058
     Dates: start: 20120428, end: 20120428
  4. PEGINTRON [Suspect]
     Dosage: 0.77 ?G/KG, QW
     Route: 058
     Dates: start: 20120505, end: 20120511
  5. PEGINTRON [Suspect]
     Dosage: 0.6 ?G/KG, QW
     Route: 058
     Dates: start: 20120518, end: 20120525
  6. PEGINTRON [Suspect]
     Dosage: 0.45 ?G/KG, QW
     Route: 058
     Dates: start: 20120601
  7. PEGINTRON [Suspect]
     Dosage: 0.5 ?G/KG, QW
     Route: 058
     Dates: end: 20120614
  8. PEGINTRON [Suspect]
     Dosage: 0.3 ?G/KG, QW
     Route: 058
     Dates: start: 20120615, end: 20120621
  9. PEGINTRON [Suspect]
     Dosage: 0.2 ?G/KG, QW
     Route: 058
     Dates: start: 20120622, end: 20120928
  10. REBETOL [Suspect]
     Indication: CHRONIC HEPATITIS C
     Dosage: 400 MG, QD
     Route: 048
     Dates: start: 20120428, end: 20120614
  11. REBETOL [Suspect]
     Dosage: 200 MG, QD
     Route: 048
     Dates: start: 20120615, end: 20120824
  12. URSO [Concomitant]
     Dosage: 600 MG, QD
     Route: 048
  13. LAENNEC [Concomitant]
     Dosage: 0.57 AMP
     Route: 058
  14. LAENNEC [Concomitant]
     Dosage: 2 AMP
     Route: 058
     Dates: start: 20120224
  15. STRONGER MINOPHAGEN [Concomitant]
     Dosage: 2.9 ML, QD
     Route: 042
     Dates: end: 20120608
  16. TALION [Concomitant]
     Dosage: 20 MG, QD
     Route: 048
     Dates: end: 20120913
  17. PARIET [Concomitant]
     Dosage: 10 MG, QD
     Route: 048
  18. CEFOCEF [Concomitant]
     Dosage: 2 G, QD
     Route: 042
     Dates: start: 20120617, end: 20120627
  19. GLOVENIN [Concomitant]
     Dosage: 100 ML, QD
     Route: 042
     Dates: start: 20120617, end: 20120617

REACTIONS (4)
  - Enterocolitis [Recovered/Resolved]
  - Sepsis [Recovered/Resolved]
  - Pancytopenia [Recovered/Resolved]
  - Haemoglobin decreased [Recovered/Resolved]
